FAERS Safety Report 6672112-3 (Version None)
Quarter: 2010Q2

REPORT INFORMATION
  Report Type: 
  Country: None (occurrence: None)
  Receive Date: 20100407
  Receipt Date: 20100407
  Transmission Date: 20101027
  Serious: No
  Sender: FDA-Public Use
  Company Number: None

PATIENT
  Age: 42 Year
  Sex: Female

DRUGS (1)
  1. EFAVIRENZ [Suspect]
     Dosage: 600MG HS PO
     Route: 048

REACTIONS (4)
  - BLOOD PRESSURE INCREASED [None]
  - DIZZINESS [None]
  - HEADACHE [None]
  - UNEVALUABLE EVENT [None]
